FAERS Safety Report 24443910 (Version 2)
Quarter: 2024Q4

REPORT INFORMATION
  Report Type: Report from Study
  Country: US (occurrence: US)
  Receive Date: 20241016
  Receipt Date: 20241017
  Transmission Date: 20250114
  Serious: No
  Sender: ROCHE
  Company Number: US-ROCHE-2382345

PATIENT
  Age: 63 Year
  Sex: Female

DRUGS (26)
  1. RITUXAN [Suspect]
     Active Substance: RITUXIMAB
     Indication: Chronic inflammatory demyelinating polyradiculoneuropathy
     Dosage: THEN EVERY 6 MONTH, DATE OF TREATMENT: 14/APR/2021
     Route: 041
  2. RITUXAN [Suspect]
     Active Substance: RITUXIMAB
     Dosage: 375MG/M2 (500MG) INTRAVENOUSLY WEEKLY FOR 4 WEEK(S) EVERY 6 MONTH(S)
     Route: 041
     Dates: start: 2019, end: 20231220
  3. RITUXAN [Suspect]
     Active Substance: RITUXIMAB
     Dosage: 600 MG INTRAVENOUSLY WEEKLY FOR 4 WEEK(S) EVERY 6 MONTH(S)
     Route: 041
     Dates: start: 20231220
  4. ASCORBIC ACID [Concomitant]
     Active Substance: ASCORBIC ACID
     Route: 048
  5. ATENOLOL [Concomitant]
     Active Substance: ATENOLOL
     Route: 048
  6. BACLOFEN [Concomitant]
     Active Substance: BACLOFEN
     Dosage: FREQUENCY TEXT:PRN
     Route: 048
  7. CHOLECALCIFEROL [Concomitant]
     Active Substance: CHOLECALCIFEROL
     Route: 048
  8. DICLOFENAC [Concomitant]
     Active Substance: DICLOFENAC
     Indication: Pain
     Route: 061
  9. DOCUSATE\SENNOSIDES [Concomitant]
     Active Substance: DOCUSATE\SENNOSIDES
     Indication: Constipation
     Route: 048
  10. ESCITALOPRAM [Concomitant]
     Active Substance: ESCITALOPRAM OXALATE
     Route: 048
  11. ESTRADIOL [Concomitant]
     Active Substance: ESTRADIOL
     Route: 061
  12. FOLIC ACID [Concomitant]
     Active Substance: FOLIC ACID
     Dosage: 1 TABLET
     Route: 048
  13. GABAPENTIN [Concomitant]
     Active Substance: GABAPENTIN
     Route: 048
  14. MUCINEX [Concomitant]
     Active Substance: GUAIFENESIN
     Route: 048
  15. LISINOPRIL [Concomitant]
     Active Substance: LISINOPRIL
     Route: 048
  16. LOPERAMIDE [Concomitant]
     Active Substance: LOPERAMIDE
     Route: 048
  17. MENTHOL [Concomitant]
     Active Substance: MENTHOL
     Indication: Myalgia
     Dosage: FREQUENCY TEXT:AS NEEDED
     Route: 061
  18. NALTREXONE [Concomitant]
     Active Substance: NALTREXONE
     Route: 048
  19. NORTRIPTYLINE [Concomitant]
     Active Substance: NORTRIPTYLINE
     Route: 048
  20. OMEPRAZOLE [Concomitant]
     Active Substance: OMEPRAZOLE
     Route: 048
  21. ONDANSETRON [Concomitant]
     Active Substance: ONDANSETRON
     Indication: Nausea
     Route: 048
  22. POLYETHYLENE GLYCOL [Concomitant]
     Active Substance: POLYETHYLENE GLYCOL
     Indication: Constipation
     Route: 048
  23. THIAMINE [Concomitant]
     Active Substance: THIAMINE
     Route: 048
  24. VALACYCLOVIR [Concomitant]
     Active Substance: VALACYCLOVIR HYDROCHLORIDE
     Route: 048
  25. ZOLPIDEM [Concomitant]
     Active Substance: ZOLPIDEM TARTRATE
     Route: 048
  26. PROCARDIA (UNITED STATES) [Concomitant]

REACTIONS (2)
  - Off label use [Unknown]
  - Weight increased [Unknown]
